FAERS Safety Report 6099772-2 (Version None)
Quarter: 2009Q1

REPORT INFORMATION
  Report Type: 
  Country: None (occurrence: None)
  Receive Date: 20090303
  Receipt Date: 20090217
  Transmission Date: 20090719
  Serious: Yes (Hospitalization)
  Sender: FDA-Public Use
  Company Number: PHHY2009DK05745

PATIENT
  Sex: Female

DRUGS (1)
  1. LEPONEX [Suspect]
     Indication: SCHIZOPHRENIA
     Dosage: 25 MG IN THE MORNING AND 50 MG IN THE EVENING
     Dates: end: 20090217

REACTIONS (3)
  - BALANCE DISORDER [None]
  - HYPOAESTHESIA [None]
  - SPEECH DISORDER [None]
